FAERS Safety Report 24122498 (Version 1)
Quarter: 2024Q3

REPORT INFORMATION
  Report Type: Spontaneous
  Country: EG (occurrence: EG)
  Receive Date: 20240723
  Receipt Date: 20240723
  Transmission Date: 20241017
  Serious: Yes (Other)
  Sender: CIPLA
  Company Number: EG-CIPLA LTD.-2024EG07730

PATIENT

DRUGS (12)
  1. BLEOMYCIN SULFATE [Suspect]
     Active Substance: BLEOMYCIN SULFATE
     Indication: Ovarian dysgerminoma stage unspecified
     Dosage: UNK (CYCLE 1)
     Route: 065
  2. BLEOMYCIN SULFATE [Suspect]
     Active Substance: BLEOMYCIN SULFATE
     Dosage: UNK (CYCLE 2)
     Route: 065
  3. BLEOMYCIN SULFATE [Suspect]
     Active Substance: BLEOMYCIN SULFATE
     Dosage: UNK (CYCLE 3)
     Route: 065
  4. BLEOMYCIN SULFATE [Suspect]
     Active Substance: BLEOMYCIN SULFATE
     Dosage: UNK (30 UNIT DAY 1 TO 5) (CYCLE 4)
     Route: 042
     Dates: start: 20240429
  5. CISPLATIN [Suspect]
     Active Substance: CISPLATIN
     Indication: Ovarian dysgerminoma stage unspecified
     Dosage: UNK (CYCLE 1)
     Route: 065
  6. CISPLATIN [Suspect]
     Active Substance: CISPLATIN
     Dosage: UNK (CYCLE 2)
     Route: 065
  7. CISPLATIN [Suspect]
     Active Substance: CISPLATIN
     Dosage: UNK (CYCLE 3)
     Route: 065
  8. CISPLATIN [Suspect]
     Active Substance: CISPLATIN
     Dosage: UNK (CYCLE 4) (DAY 1 TO DAY 5)
     Route: 042
     Dates: start: 20240429
  9. ETOPOSIDE [Suspect]
     Active Substance: ETOPOSIDE
     Indication: Ovarian dysgerminoma stage unspecified
     Dosage: UNK (CYCLE 1)
     Route: 065
  10. ETOPOSIDE [Suspect]
     Active Substance: ETOPOSIDE
     Dosage: UNK (CYCLES 2)
     Route: 065
  11. ETOPOSIDE [Suspect]
     Active Substance: ETOPOSIDE
     Dosage: UNK (CYCLE 3)
     Route: 065
  12. ETOPOSIDE [Suspect]
     Active Substance: ETOPOSIDE
     Dosage: UNK (CYCLE 4) ( DAY1)
     Route: 042
     Dates: start: 20240429

REACTIONS (2)
  - Neutropenia [Recovered/Resolved]
  - White blood cell count decreased [Recovered/Resolved]

NARRATIVE: CASE EVENT DATE: 20240101
